FAERS Safety Report 19061003 (Version 2)
Quarter: 2021Q2

REPORT INFORMATION
  Report Type: Report from Study
  Country: CA (occurrence: CA)
  Receive Date: 20210325
  Receipt Date: 20210517
  Transmission Date: 20210717
  Serious: Yes (Other)
  Sender: FDA-Public Use
  Company Number: CA-BRISTOL-MYERS SQUIBB COMPANY-BMS-2020-075571

PATIENT
  Age: 46 Year
  Sex: Female

DRUGS (1)
  1. ABATACEPT [Suspect]
     Active Substance: ABATACEPT
     Indication: RHEUMATOID ARTHRITIS
     Dosage: 750 MILLIGRAM, Q3WK
     Route: 042

REACTIONS (9)
  - Arthritis [Unknown]
  - Inappropriate schedule of product administration [Unknown]
  - Heart rate increased [Unknown]
  - Anxiety [Unknown]
  - Off label use [Unknown]
  - Joint injury [Unknown]
  - Polyarthritis [Unknown]
  - Blood pressure systolic increased [Unknown]
  - Procedural headache [Unknown]

NARRATIVE: CASE EVENT DATE: 20200929
